FAERS Safety Report 12009214 (Version 1)
Quarter: 2016Q1

REPORT INFORMATION
  Report Type: Report from Study
  Country: US (occurrence: US)
  Receive Date: 20160205
  Receipt Date: 20160205
  Transmission Date: 20160526
  Serious: No
  Sender: FDA-Public Use
  Company Number: US-ABBVIE-15K-163-1445450-00

PATIENT
  Age: 36 Year
  Sex: Female

DRUGS (1)
  1. HUMIRA [Suspect]
     Active Substance: ADALIMUMAB
     Indication: PSORIASIS
     Route: 065

REACTIONS (6)
  - Drug administration error [Unknown]
  - Acne [Not Recovered/Not Resolved]
  - Psoriasis [Not Recovered/Not Resolved]
  - Liquid product physical issue [Unknown]
  - Liquid product physical issue [Unknown]
  - Drug administration error [Unknown]

NARRATIVE: CASE EVENT DATE: 201507
